FAERS Safety Report 5162245-5 (Version None)
Quarter: 2006Q4

REPORT INFORMATION
  Report Type: 
  Country: None (occurrence: None)
  Receive Date: 20061121
  Receipt Date: 20061115
  Transmission Date: 20070319
  Serious: Yes (Life-Threatening, Hospitalization)
  Sender: FDA-Public Use
  Company Number: 2006ADE/DICLO-027

PATIENT
  Age: 60 Year
  Sex: Male

DRUGS (5)
  1. DICLOFENAC-RATIOPHARM [Suspect]
     Indication: MENISCUS LESION
     Dosage: 150 MG, DAILY, ORAL
     Route: 048
  2. ACETYLSALICYLIC ACID SRT [Concomitant]
  3. RAMIPRIL [Concomitant]
  4. METOPROLOL SUCCINATE [Concomitant]
  5. SIMVASTATIN [Concomitant]

REACTIONS (5)
  - ANAPHYLACTIC SHOCK [None]
  - DYSPNOEA [None]
  - OEDEMA MUCOSAL [None]
  - RASH [None]
  - SYNCOPE [None]
